FAERS Safety Report 19215683 (Version 1)
Quarter: 2021Q2

REPORT INFORMATION
  Report Type: Spontaneous
  Country: US (occurrence: US)
  Receive Date: 20210505
  Receipt Date: 20210505
  Transmission Date: 20210717
  Serious: Yes (Other)
  Sender: FDA-Public Use
  Company Number: US-AUROBINDO-AUR-APL-2021-018158

PATIENT
  Age: 52 Year
  Sex: Male

DRUGS (5)
  1. RIFABUTIN. [Suspect]
     Active Substance: RIFABUTIN
     Indication: MEDIASTINITIS
     Dosage: UNK
     Route: 048
  2. AZITHROMYCIN ANHYDROUS. [Suspect]
     Active Substance: AZITHROMYCIN ANHYDROUS
     Indication: MEDIASTINITIS
     Dosage: UNK
     Route: 048
  3. CLOFAZIMINE [Suspect]
     Active Substance: CLOFAZIMINE
     Indication: MEDIASTINITIS
     Dosage: UNK
     Route: 048
  4. AMIKACIN. [Suspect]
     Active Substance: AMIKACIN
     Indication: MEDIASTINITIS
     Dosage: UNK
     Route: 048
  5. ETHAMBUTOL [Suspect]
     Active Substance: ETHAMBUTOL HYDROCHLORIDE
     Indication: MEDIASTINITIS
     Dosage: UNK
     Route: 048

REACTIONS (1)
  - Immune reconstitution inflammatory syndrome [Recovered/Resolved]
